FAERS Safety Report 7753166-X (Version None)
Quarter: 2011Q3

REPORT INFORMATION
  Report Type: 
  Country: None (occurrence: None)
  Receive Date: 20110915
  Receipt Date: 20110907
  Transmission Date: 20111222
  Serious: Yes (Other)
  Sender: FDA-Public Use
  Company Number: MA-BRISTOL-MYERS SQUIBB COMPANY-15603145

PATIENT
  Sex: Male

DRUGS (1)
  1. LISODREN TABS 500 MG [Suspect]
     Dates: start: 20101001

REACTIONS (3)
  - DIARRHOEA [None]
  - WEIGHT DECREASED [None]
  - FATIGUE [None]
